FAERS Safety Report 10213053 (Version 2)
Quarter: 2014Q2

REPORT INFORMATION
  Report Type: Spontaneous
  Country: US (occurrence: US)
  Receive Date: 20140603
  Receipt Date: 20140620
  Transmission Date: 20141212
  Serious: No
  Sender: FDA-Public Use
  Company Number: US-009507513-1405USA015092

PATIENT
  Sex: Female

DRUGS (1)
  1. OXYTROL FOR WOMEN [Suspect]
     Indication: POLLAKIURIA
     Dosage: 1 DF, Q4D
     Route: 062
     Dates: start: 20140429, end: 20140510

REACTIONS (5)
  - Blood urine [Not Recovered/Not Resolved]
  - Tremor [Unknown]
  - Flank pain [Recovering/Resolving]
  - Myalgia [Unknown]
  - Off label use [Unknown]
